FAERS Safety Report 5972627-7 (Version None)
Quarter: 2008Q4

REPORT INFORMATION
  Report Type: 
  Country: None (occurrence: None)
  Receive Date: 20081201
  Receipt Date: 20081124
  Transmission Date: 20090506
  Serious: Yes (Hospitalization)
  Sender: FDA-Public Use
  Company Number: FR-JNJFOC-20081105988

PATIENT
  Sex: Female

DRUGS (10)
  1. RISPERDAL [Suspect]
     Indication: DRUG USE FOR UNKNOWN INDICATION
     Route: 048
  2. REMINYL [Concomitant]
     Route: 048
  3. EBIXA [Concomitant]
     Route: 065
  4. SERESTA [Concomitant]
     Route: 065
  5. TIAPRIDAL [Concomitant]
     Route: 048
  6. SELOKEN [Concomitant]
     Route: 048
  7. LASIX [Concomitant]
     Route: 065
  8. EDUCTYL [Concomitant]
     Route: 065
  9. FORLAX [Concomitant]
     Route: 065
  10. LEVEMIR [Concomitant]
     Route: 065

REACTIONS (3)
  - ABNORMAL BEHAVIOUR [None]
  - CHOLESTASIS [None]
  - CYTOLYTIC HEPATITIS [None]
